FAERS Safety Report 21103604 (Version 2)
Quarter: 2022Q3

REPORT INFORMATION
  Report Type: Other
  Country: CA (occurrence: None)
  Receive Date: 20220720
  Receipt Date: 20220819
  Transmission Date: 20221026
  Serious: Yes (Other)
  Sender: FDA-Public Use
  Company Number: CA-ROCHE-2897894

PATIENT
  Age: 55 Year
  Sex: Female

DRUGS (8)
  1. OCREVUS [Suspect]
     Active Substance: OCRELIZUMAB
     Indication: Primary progressive multiple sclerosis
     Dosage: 300 MG AT DAY 0 AND 14, THEN 600 MG EVERY 6 MONTH
     Route: 042
     Dates: start: 20210806
  2. BACLOFEN [Concomitant]
     Active Substance: BACLOFEN
  3. RAPAFLO [Concomitant]
     Active Substance: SILODOSIN
  4. MAGNESIUM [Concomitant]
     Active Substance: MAGNESIUM
  5. EVENING PRIMROSE OIL\HERBALS [Concomitant]
     Active Substance: EVENING PRIMROSE OIL\HERBALS
  6. OMEGA 3 [Concomitant]
     Active Substance: CAPSAICIN
  7. AMOXICILLIN\CLAVULANATE POTASSIUM [Concomitant]
     Active Substance: AMOXICILLIN\CLAVULANATE POTASSIUM
  8. PRAMIPEXOLE [Concomitant]
     Active Substance: PRAMIPEXOLE

REACTIONS (27)
  - Infusion related reaction [Recovered/Resolved]
  - Insomnia [Recovering/Resolving]
  - Muscle spasms [Recovered/Resolved]
  - Restless legs syndrome [Recovering/Resolving]
  - Fall [Unknown]
  - Hypoaesthesia [Not Recovered/Not Resolved]
  - Dizziness [Not Recovered/Not Resolved]
  - Calcinosis [Not Recovered/Not Resolved]
  - Contusion [Recovered/Resolved]
  - Dyspnoea [Recovered/Resolved]
  - Peripheral coldness [Not Recovered/Not Resolved]
  - Breast discomfort [Not Recovered/Not Resolved]
  - Burning sensation [Recovered/Resolved]
  - Peripheral swelling [Recovered/Resolved]
  - Muscular weakness [Recovered/Resolved]
  - Insomnia [Recovered/Resolved]
  - Peripheral swelling [Recovered/Resolved]
  - Musculoskeletal stiffness [Not Recovered/Not Resolved]
  - Peripheral coldness [Not Recovered/Not Resolved]
  - Upper limb fracture [Unknown]
  - Balance disorder [Not Recovered/Not Resolved]
  - Bronchitis [Not Recovered/Not Resolved]
  - Influenza [Unknown]
  - Multiple sclerosis [Unknown]
  - Therapy non-responder [Unknown]
  - Illness [Unknown]
  - Malaise [Unknown]

NARRATIVE: CASE EVENT DATE: 20210806
